FAERS Safety Report 7131598 (Version 4)
Quarter: 2015Q1

REPORT INFORMATION
  Report Type: Spontaneous
  Country: GR (occurrence: None)
  Receive Date: 20090915
  Receipt Date: 20150226
  Transmission Date: 20150721
  Serious: Yes (Death, Hospitalization, Other)
  Sender: FDA-Public Use
  Company Number: 2009002632

PATIENT
  Age: 61 Year
  Sex: Male

DRUGS (14)
  1. LOGIMAX [Concomitant]
     Active Substance: FELODIPINE\METOPROLOL SUCCINATE
  2. DEXAMETHASONE (DEXAMETHASONE) [Concomitant]
     Active Substance: DEXAMETHASONE
  3. FENISTIL (DIMETINDENE MALEATE) [Concomitant]
  4. DOCETAXEL. [Suspect]
     Active Substance: DOCETAXEL
     Indication: NON-SMALL CELL LUNG CANCER METASTATIC
     Dosage: 130 MG, EVERY 3 WEEKS, INTRAVENOUS
     Route: 042
     Dates: start: 20090708, end: 20090708
  5. GLIMEPIRIDE. [Concomitant]
     Active Substance: GLIMEPIRIDE
     Indication: DIABETES MELLITUS
     Dosage: (4 MG) , ORAL
     Route: 048
     Dates: start: 2007, end: 20090724
  6. ONDANSETRON [Concomitant]
     Active Substance: ONDANSETRON
  7. PREDNISOLONE. [Concomitant]
     Active Substance: PREDNISOLONE
  8. AUGMENTIN [Concomitant]
     Active Substance: AMOXICILLIN\CLAVULANATE POTASSIUM
  9. ELOCON [Concomitant]
     Active Substance: MOMETASONE FUROATE
  10. TARCEVA [Suspect]
     Active Substance: ERLOTINIB HYDROCHLORIDE
     Indication: NON-SMALL CELL LUNG CANCER
     Dosage: 150 MG, ONCE DAILY, ORAL
     Route: 048
     Dates: start: 20090711, end: 20090722
  11. ATACAND PLUS (BLOPRESS PLUS) [Concomitant]
  12. LONARID (LONARID) [Concomitant]
  13. EUCREAS (METFORMIN HYDROCHLORIDE, VILDAGLIPTIN) [Concomitant]
  14. NYSTATIN (NYSTATIN) [Concomitant]
     Active Substance: NYSTATIN

REACTIONS (13)
  - Hyponatraemia [None]
  - Bone pain [None]
  - Fatigue [None]
  - Pleural effusion [None]
  - Leukopenia [None]
  - Blood glucose decreased [None]
  - Weight decreased [None]
  - Culture urine positive [None]
  - Cystitis [None]
  - Septic shock [None]
  - Decreased appetite [None]
  - Hypoalbuminaemia [None]
  - Staphylococcal infection [None]

NARRATIVE: CASE EVENT DATE: 20090709
